FAERS Safety Report 9583378 (Version 1)
Quarter: 2013Q4

REPORT INFORMATION
  Report Type: Spontaneous
  Country: US (occurrence: US)
  Receive Date: 20131002
  Receipt Date: 20131002
  Transmission Date: 20140711
  Serious: No
  Sender: FDA-Public Use
  Company Number: US-AMGEN-USASP2013046528

PATIENT
  Age: 56 Year
  Sex: Female
  Weight: 122.45 kg

DRUGS (2)
  1. ENBREL [Suspect]
     Indication: PRODUCT USED FOR UNKNOWN INDICATION
     Dosage: UNK
     Route: 065
  2. ATENOLOL [Concomitant]
     Dosage: 25 MG, UNK
     Route: 065

REACTIONS (1)
  - Arthralgia [Unknown]
